FAERS Safety Report 16092283 (Version 1)
Quarter: 2019Q1

REPORT INFORMATION
  Report Type: Spontaneous
  Country: US (occurrence: US)
  Receive Date: 20190319
  Receipt Date: 20190319
  Transmission Date: 20190418
  Serious: Yes (Hospitalization)
  Sender: FDA-Public Use
  Company Number: PHHY2019US057569

PATIENT
  Age: 18 Year
  Sex: Female

DRUGS (1)
  1. PROMACTA [Suspect]
     Active Substance: ELTROMBOPAG OLAMINE
     Indication: IMMUNE THROMBOCYTOPENIC PURPURA
     Route: 065

REACTIONS (7)
  - Haemorrhagic infarction [Unknown]
  - Seizure [Unknown]
  - Brain herniation [Unknown]
  - Diabetes insipidus [Unknown]
  - Areflexia [Unknown]
  - Headache [Unknown]
  - Subarachnoid haemorrhage [Unknown]
